FAERS Safety Report 8149956-4 (Version None)
Quarter: 2012Q1

REPORT INFORMATION
  Report Type: 
  Country: None (occurrence: None)
  Receive Date: 20120218
  Receipt Date: 20120116
  Transmission Date: 20120608
  Serious: No
  Sender: FDA-Public Use
  Company Number: US-ALLERGAN-1116667US

PATIENT
  Age: 32 Year
  Sex: Male

DRUGS (1)
  1. BOTULINUM TOXIN TYPE A [Suspect]
     Indication: MUSCLE SPASTICITY
     Dosage: 600 UNITS, SINGLE
     Route: 030
     Dates: start: 20110818, end: 20110818

REACTIONS (1)
  - RASH [None]
